FAERS Safety Report 8962575 (Version 3)
Quarter: 2013Q1

REPORT INFORMATION
  Report Type: Spontaneous
  Country: US (occurrence: US)
  Receive Date: 20121213
  Receipt Date: 20130107
  Transmission Date: 20140127
  Serious: No
  Sender: FDA-Public Use
  Company Number: US-PFIZER INC-2012309967

PATIENT
  Age: 53 Year
  Sex: Male

DRUGS (1)
  1. DEPO-TESTOSTERONE [Suspect]
     Dosage: 0.2 ML, 2X/WEEK (200 MG/ML)
     Route: 058

REACTIONS (4)
  - Product solubility abnormal [Unknown]
  - Chest wall mass [Unknown]
  - Pruritus [Unknown]
  - Burning sensation [Unknown]
